FAERS Safety Report 11129556 (Version 1)
Quarter: 2015Q2

REPORT INFORMATION
  Report Type: Spontaneous
  Country: US (occurrence: US)
  Receive Date: 20150521
  Receipt Date: 20150521
  Transmission Date: 20150821
  Serious: Yes (Hospitalization, Other)
  Sender: FDA-Public Use
  Company Number: 2015SP001658

PATIENT
  Age: 24 Year
  Sex: Male
  Weight: 81 kg

DRUGS (16)
  1. LITHIUM. [Concomitant]
     Active Substance: LITHIUM
     Route: 048
  2. ZALEPLON. [Concomitant]
     Active Substance: ZALEPLON
     Route: 048
  3. THORAZINE [Concomitant]
     Active Substance: CHLORPROMAZINE
     Route: 048
  4. LATUDA [Suspect]
     Active Substance: LURASIDONE HYDROCHLORIDE
     Indication: SCHIZOAFFECTIVE DISORDER BIPOLAR TYPE
     Route: 048
     Dates: start: 20150415, end: 201505
  5. PROTONIX [Concomitant]
     Active Substance: PANTOPRAZOLE SODIUM
     Route: 048
  6. LAMICTAL [Concomitant]
     Active Substance: LAMOTRIGINE
     Route: 048
  7. TOPAMAX [Concomitant]
     Active Substance: TOPIRAMATE
     Route: 048
  8. TOFRANIL [Concomitant]
     Active Substance: IMIPRAMINE HYDROCHLORIDE
     Route: 048
  9. DITROPAN XL [Concomitant]
     Active Substance: OXYBUTYNIN CHLORIDE
     Route: 048
  10. VISTARIL [Concomitant]
     Active Substance: HYDROXYZINE PAMOATE
     Route: 048
  11. THORAZINE [Concomitant]
     Active Substance: CHLORPROMAZINE
     Route: 048
  12. PRAZOSIN HCL [Concomitant]
     Active Substance: PRAZOSIN HYDROCHLORIDE
     Route: 048
  13. THORAZINE [Concomitant]
     Active Substance: CHLORPROMAZINE
     Route: 048
  14. PAROXETINE [Concomitant]
     Active Substance: PAROXETINE\PAROXETINE HYDROCHLORIDE
     Route: 048
  15. TRILEPTAL [Concomitant]
     Active Substance: OXCARBAZEPINE
     Route: 048
  16. TRAMADOL [Concomitant]
     Active Substance: TRAMADOL

REACTIONS (2)
  - Haematemesis [Not Recovered/Not Resolved]
  - Gastrointestinal disorder [Not Recovered/Not Resolved]

NARRATIVE: CASE EVENT DATE: 201504
